FAERS Safety Report 7422237-X (Version None)
Quarter: 2011Q2

REPORT INFORMATION
  Report Type: 
  Country: None (occurrence: None)
  Receive Date: 20110419
  Receipt Date: 20110406
  Transmission Date: 20111010
  Serious: Yes (Death, Hospitalization)
  Sender: FDA-Public Use
  Company Number: JP-BAYER-2011-001236

PATIENT
  Age: 86 Year
  Sex: Female
  Weight: 39.909 kg

DRUGS (12)
  1. NEO-MINOPHAGEN C [Concomitant]
     Dosage: DAILY DOSE 2 DF
     Route: 042
     Dates: start: 20110102, end: 20110124
  2. MAGMITT [Concomitant]
     Dosage: DAILY DOSE 330 MG
     Route: 048
  3. AMLODIN [Concomitant]
     Dosage: DAILY DOSE 5 MG
     Route: 048
  4. ALANTA SF [Concomitant]
     Dosage: DAILY DOSE 100 MG
     Route: 048
  5. GASMOTIN [Concomitant]
     Dosage: DAILY DOSE 5 MG
     Route: 048
  6. SENNARIDE [Concomitant]
     Dosage: DAILY DOSE 36 MG
     Route: 048
  7. AVELOX [Suspect]
     Indication: UPPER RESPIRATORY TRACT INFLAMMATION
     Dosage: 400 MG, QD
     Route: 048
     Dates: start: 20101228, end: 20110101
  8. PARIET [Concomitant]
     Dosage: DAILY DOSE 10 MG
     Route: 048
  9. NEO-MINOPHAGEN C [Concomitant]
     Dosage: UNK
     Route: 042
     Dates: start: 20110102, end: 20110124
  10. VESICARE [Concomitant]
     Dosage: DAILY DOSE 5 MG
     Route: 048
  11. CEROCRAL [Concomitant]
     Dosage: DAILY DOSE 60 MG
     Route: 048
  12. LASIX [Concomitant]
     Dosage: UNK
     Route: 065
     Dates: start: 20110118

REACTIONS (7)
  - HYPOGLYCAEMIC COMA [None]
  - MALAISE [None]
  - HYPOPROTEINAEMIA [None]
  - CIRCULATORY COLLAPSE [None]
  - RESPIRATORY FAILURE [None]
  - LIVER DISORDER [None]
  - DEHYDRATION [None]
